FAERS Safety Report 8311884-9 (Version None)
Quarter: 2012Q2

REPORT INFORMATION
  Report Type: 
  Country: None (occurrence: None)
  Receive Date: 20120425
  Receipt Date: 20120416
  Transmission Date: 20120825
  Serious: Yes (Death, Hospitalization, Other)
  Sender: FDA-Public Use
  Company Number: US-ACTELION-A-US2011-55340

PATIENT

DRUGS (2)
  1. TRACLEER [Suspect]
     Indication: PULMONARY ARTERIAL HYPERTENSION
     Dosage: UNK
     Route: 048
     Dates: start: 20110912
  2. LASIX [Concomitant]

REACTIONS (5)
  - DEATH [None]
  - CELLULITIS [None]
  - JOINT DISLOCATION [None]
  - OEDEMA PERIPHERAL [None]
  - JOINT STABILISATION [None]
